FAERS Safety Report 8575809-3 (Version None)
Quarter: 2012Q3

REPORT INFORMATION
  Report Type: 
  Country: None (occurrence: None)
  Receive Date: 20120807
  Receipt Date: 20120731
  Transmission Date: 20120928
  Serious: Yes (Hospitalization)
  Sender: FDA-Public Use
  Company Number: BR-US-EMD SERONO, INC.-7147555

PATIENT
  Sex: Female

DRUGS (2)
  1. REBIF [Suspect]
     Indication: RELAPSING-REMITTING MULTIPLE SCLEROSIS
     Dates: start: 20120203
  2. ACETAMINOPHEN [Concomitant]
     Indication: PAIN

REACTIONS (9)
  - DYSARTHRIA [None]
  - VISION BLURRED [None]
  - DYSKINESIA [None]
  - BALANCE DISORDER [None]
  - NAUSEA [None]
  - PAIN [None]
  - HEADACHE [None]
  - MUSCULOSKELETAL STIFFNESS [None]
  - CENTRAL NERVOUS SYSTEM LESION [None]
